FAERS Safety Report 4374672-4 (Version None)
Quarter: 2004Q2

REPORT INFORMATION
  Report Type: 
  Country: None (occurrence: None)
  Receive Date: 20040604
  Receipt Date: 20040524
  Transmission Date: 20050107
  Serious: Yes (Other)
  Sender: FDA-Public Use
  Company Number: 2004034780

PATIENT
  Age: 71 Year
  Sex: Female
  Weight: 102.0593 kg

DRUGS (9)
  1. NITROSTAT [Suspect]
     Indication: CARDIAC FAILURE
     Dosage: (0.4 MG, AS NEEDED)
     Dates: start: 19790101
  2. ACETYLSALICYLIC ACID SRT [Concomitant]
  3. METOPROLOL TARTRATE [Concomitant]
  4. SERETIDE MITE (FLUTICASONE PROPIONATE, SALMETEROL XINAFOATE) [Concomitant]
  5. DIGOXIN [Concomitant]
  6. FUROSEMIDE [Concomitant]
  7. POTASSIUM (POTASSIUM) [Concomitant]
  8. ENALAPRIL MALEATE [Concomitant]
  9. ALL OTHER THERAPEUTIC PRODUCTS (ALL OTHER THERAPEUTIC PRODUCTS) [Concomitant]

REACTIONS (4)
  - CATARACT [None]
  - KNEE ARTHROPLASTY [None]
  - MYOCARDIAL INFARCTION [None]
  - PHARMACEUTICAL PRODUCT COMPLAINT [None]
